FAERS Safety Report 9881797 (Version 1)
Quarter: 2014Q1

REPORT INFORMATION
  Report Type: Report from Study
  Country: KR (occurrence: KR)
  Receive Date: 20140207
  Receipt Date: 20140207
  Transmission Date: 20141002
  Serious: Yes (Death)
  Sender: FDA-Public Use
  Company Number: KR-SA-2014SA015894

PATIENT
  Sex: 0

DRUGS (3)
  1. OXALIPLATIN [Suspect]
     Indication: ADENOCARCINOMA GASTRIC
     Dosage: DAY 1, DILUTED IN 500 ML OF 5% GLUCOSE SOLUTION AND ADMINISTERED OVER 90 MIN.
     Route: 065
  2. DOCETAXEL [Suspect]
     Indication: ADENOCARCINOMA GASTRIC
     Dosage: DAYS 1 AND 8, INFUSED INTRAVENOUSLY IN 200ML OF 5% GLUCOSE OVER 60 MIN.
     Route: 042
  3. DEXAMETHASONE [Concomitant]
     Indication: PREMEDICATION
     Dosage: BEFORE EACH DOCETAXEL INFUSION
     Route: 042

REACTIONS (1)
  - Death [Fatal]
